FAERS Safety Report 7250031-1 (Version None)
Quarter: 2011Q1

REPORT INFORMATION
  Report Type: 
  Country: None (occurrence: None)
  Receive Date: 20110121
  Receipt Date: 20110121
  Transmission Date: 20110831
  Serious: No
  Sender: FDA-Public Use
  Company Number: None

PATIENT

DRUGS (1)
  1. AQUAFRESH EXTREME CLEAN TOOTHPASTE [Suspect]
     Dates: start: 20101225, end: 20101225

REACTIONS (3)
  - TOOTHACHE [None]
  - HYPERSENSITIVITY [None]
  - PRODUCT QUALITY ISSUE [None]
